FAERS Safety Report 18602049 (Version 2)
Quarter: 2021Q2

REPORT INFORMATION
  Report Type: Spontaneous
  Country: US (occurrence: US)
  Receive Date: 20201210
  Receipt Date: 20210628
  Transmission Date: 20210717
  Serious: No
  Sender: FDA-Public Use
  Company Number: US-PFIZER INC-2020486154

PATIENT
  Age: 70 Year
  Sex: Female

DRUGS (1)
  1. CELEBREX [Suspect]
     Active Substance: CELECOXIB
     Indication: POLYARTHRITIS
     Dosage: 200 MG, 1X/DAY
     Route: 048

REACTIONS (4)
  - Product dose omission in error [Unknown]
  - Mobility decreased [Unknown]
  - Off label use [Unknown]
  - Time perception altered [Unknown]
